FAERS Safety Report 6583923-7 (Version None)
Quarter: 2010Q1

REPORT INFORMATION
  Report Type: 
  Country: None (occurrence: None)
  Receive Date: 20100213
  Receipt Date: 20100213
  Transmission Date: 20100710
  Serious: Yes (Disabling)
  Sender: FDA-Public Use
  Company Number: None

PATIENT
  Age: 67 Year
  Sex: Male
  Weight: 111.1313 kg

DRUGS (2)
  1. NAPROXEN SODIUM [Suspect]
     Indication: TOOTH ABSCESS
     Dosage: 2 TABLETS 3 TIMES PER DAY
     Dates: start: 20100120, end: 20100129
  2. AMPICILLIN [Suspect]
     Dosage: ONE TABLET ONCE PER DAY
     Dates: start: 20100120, end: 20100124

REACTIONS (2)
  - BLOOD CREATINE INCREASED [None]
  - INCORRECT DOSE ADMINISTERED [None]
